FAERS Safety Report 9205354 (Version 1)
Quarter: 2013Q2

REPORT INFORMATION
  Report Type: Spontaneous
  Country: US (occurrence: US)
  Receive Date: 20130402
  Receipt Date: 20130402
  Transmission Date: 20140414
  Serious: No
  Sender: FDA-Public Use
  Company Number: US-009507513-1304USA000232

PATIENT
  Age: 25 Year
  Sex: Female

DRUGS (2)
  1. NUVARING [Suspect]
     Indication: CONTRACEPTION
     Dosage: UNK
     Route: 067
     Dates: start: 2006
  2. NUVARING [Suspect]
     Indication: POLYCYSTIC OVARIES

REACTIONS (2)
  - Metrorrhagia [Not Recovered/Not Resolved]
  - Weight loss poor [Not Recovered/Not Resolved]
